FAERS Safety Report 21499931 (Version 2)
Quarter: 2022Q4

REPORT INFORMATION
  Report Type: Spontaneous
  Country: US (occurrence: US)
  Receive Date: 20221024
  Receipt Date: 20221101
  Transmission Date: 20230112
  Serious: Yes (Other)
  Sender: FDA-Public Use
  Company Number: US-PFIZER INC-PV202200081664

PATIENT
  Age: 68 Year
  Sex: Male

DRUGS (5)
  1. CARBOPLATIN [Suspect]
     Active Substance: CARBOPLATIN
     Indication: Thyroid cancer stage III
     Dosage: OVER 7 WEEKS
  2. CARBOPLATIN [Suspect]
     Active Substance: CARBOPLATIN
     Dosage: EVERY 3 WEEKS
  3. PACLITAXEL [Suspect]
     Active Substance: PACLITAXEL
     Indication: Thyroid cancer stage III
     Dosage: OVER 7 WEEKS
  4. PACLITAXEL [Suspect]
     Active Substance: PACLITAXEL
     Dosage: EVERY 3 WEEKS
  5. PEMBROLIZUMAB [Concomitant]
     Active Substance: PEMBROLIZUMAB

REACTIONS (9)
  - Hypothyroidism [Unknown]
  - Dysphagia [Unknown]
  - Dry mouth [Unknown]
  - Mucosal inflammation [Unknown]
  - Fatigue [Unknown]
  - Dermatitis [Unknown]
  - Hypophagia [Unknown]
  - Skin exfoliation [Unknown]
  - Weight decreased [Unknown]
